FAERS Safety Report 9245653 (Version 1)
Quarter: 2013Q2

REPORT INFORMATION
  Report Type: Spontaneous
  Country: CA (occurrence: CA)
  Receive Date: 20130422
  Receipt Date: 20130422
  Transmission Date: 20140414
  Serious: Yes (Hospitalization, Other)
  Sender: FDA-Public Use
  Company Number: CA-PFIZER INC-2013124857

PATIENT
  Age: 56 Year
  Sex: Female

DRUGS (5)
  1. CELEBREX [Suspect]
     Dosage: 200 MG, UNK
     Dates: start: 200004
  2. TYLENOL NO. 3 [Concomitant]
     Dosage: UNK
  3. MOTILIUM [Concomitant]
     Dosage: UNK
     Route: 048
  4. OMEPRAZOLE [Concomitant]
     Dosage: UNK
     Route: 048
  5. ZOLOFT [Concomitant]
     Indication: PAIN
     Dosage: UNK
     Route: 048

REACTIONS (4)
  - Acute myocardial infarction [Recovered/Resolved]
  - Acute coronary syndrome [Recovered/Resolved]
  - Coronary artery disease [Unknown]
  - Hyperlipidaemia [Unknown]
